FAERS Safety Report 4370578-5 (Version None)
Quarter: 2004Q2

REPORT INFORMATION
  Report Type: 
  Country: None (occurrence: None)
  Receive Date: 20040603
  Receipt Date: 20040525
  Transmission Date: 20050107
  Serious: Yes (Death)
  Sender: FDA-Public Use
  Company Number: BE-MERCK-0405BEL00036

PATIENT
  Age: 67 Year
  Sex: Male
  Weight: 89 kg

DRUGS (4)
  1. AMBISOME [Concomitant]
     Indication: CANDIDIASIS
     Route: 042
     Dates: start: 20040322, end: 20040325
  2. CANCIDAS [Suspect]
     Indication: CANDIDIASIS
     Route: 042
     Dates: start: 20040326, end: 20040327
  3. CANCIDAS [Suspect]
     Route: 042
     Dates: start: 20040328, end: 20040411
  4. FLUCONAZOLE [Concomitant]
     Indication: CANDIDIASIS
     Route: 042
     Dates: start: 20040321, end: 20040322

REACTIONS (1)
  - SHOCK HAEMORRHAGIC [None]
